FAERS Safety Report 7827172-0 (Version None)
Quarter: 2011Q4

REPORT INFORMATION
  Report Type: 
  Country: None (occurrence: None)
  Receive Date: 20111020
  Receipt Date: 20111019
  Transmission Date: 20120403
  Serious: No
  Sender: FDA-Public Use
  Company Number: US-B.I. PHARMACEUTICALS,INC./RIDGEFIELD-2011-BP-24528BP

PATIENT
  Sex: Male

DRUGS (3)
  1. ZOCOR [Concomitant]
     Dosage: 40 MG
     Route: 048
  2. TOPROL-XL [Concomitant]
     Dosage: 50 MG
     Route: 048
  3. PRADAXA [Suspect]
     Indication: ATRIAL FIBRILLATION
     Dosage: 300 MG
     Route: 048
     Dates: start: 20110601

REACTIONS (5)
  - HICCUPS [None]
  - NOCTURIA [None]
  - FEELING ABNORMAL [None]
  - MEMORY IMPAIRMENT [None]
  - ASTHENIA [None]
